FAERS Safety Report 9486398 (Version 1)
Quarter: 2013Q3

REPORT INFORMATION
  Report Type: Spontaneous
  Country: US (occurrence: US)
  Receive Date: 20130829
  Receipt Date: 20130829
  Transmission Date: 20140515
  Serious: No
  Sender: FDA-Public Use
  Company Number: US-PFIZER INC-2013248573

PATIENT
  Sex: Female

DRUGS (2)
  1. CELEBREX [Suspect]
     Indication: SPONDYLITIS
     Dosage: 200 MG, UNK
     Route: 048
     Dates: start: 20130827
  2. CELEBREX [Suspect]
     Indication: ARTHRITIS

REACTIONS (1)
  - Dizziness [Not Recovered/Not Resolved]
